FAERS Safety Report 11301288 (Version 1)
Quarter: 2015Q2

REPORT INFORMATION
  Report Type: Spontaneous
  Country: US (occurrence: None)
  Receive Date: 20150626
  Receipt Date: 20150626
  Transmission Date: 20150821
  Serious: No
  Sender: FDA-Public Use
  Company Number: 1000075810

PATIENT
  Sex: Female

DRUGS (1)
  1. LINZESS [Suspect]
     Active Substance: LINACLOTIDE
     Indication: CONSTIPATION
     Dosage: 290 MCG, 1 IN 1 D
     Dates: start: 20150407

REACTIONS (4)
  - Diarrhoea [None]
  - Flatulence [None]
  - Nausea [None]
  - Intentional product misuse [None]

NARRATIVE: CASE EVENT DATE: 20150407
